FAERS Safety Report 8489178-0 (Version None)
Quarter: 2012Q3

REPORT INFORMATION
  Report Type: 
  Country: None (occurrence: None)
  Receive Date: 20120705
  Receipt Date: 20120626
  Transmission Date: 20120928
  Serious: Yes (Hospitalization)
  Sender: FDA-Public Use
  Company Number: JP-ASTRAZENECA-2012SE37673

PATIENT
  Age: 78 Year
  Sex: Female

DRUGS (6)
  1. ANTIPYRETICS, ANALGESICS AND ANTI-INFLAMATORY AGENTS [Suspect]
     Route: 048
     Dates: end: 20120524
  2. BUFFERIN [Suspect]
     Indication: CEREBRAL INFARCTION
     Route: 048
     Dates: end: 20120524
  3. NORVASC [Suspect]
     Indication: HYPERTENSION
     Route: 048
     Dates: end: 20120524
  4. FAMOTIDINE [Suspect]
     Indication: GASTRITIS
     Route: 048
     Dates: start: 20120301, end: 20120524
  5. OLMESARTAN MEDOXOMIL [Suspect]
     Indication: HYPERTENSION
     Route: 048
     Dates: end: 20120524
  6. CRESTOR [Suspect]
     Indication: DYSLIPIDAEMIA
     Route: 048
     Dates: end: 20120524

REACTIONS (1)
  - LIVER DISORDER [None]
